FAERS Safety Report 6372176-0 (Version None)
Quarter: 2009Q3

REPORT INFORMATION
  Report Type: 
  Country: None (occurrence: None)
  Receive Date: 20090917
  Receipt Date: 20090904
  Transmission Date: 20100115
  Serious: Yes (Hospitalization, Other)
  Sender: FDA-Public Use
  Company Number: ADR17612009

PATIENT
  Age: 58 Year
  Sex: Male

DRUGS (6)
  1. CITALOPRAM, 20MG          (MFR: UNKNOWN) [Suspect]
     Dosage: ORAL
     Route: 048
     Dates: start: 20090918
  2. ASPIRIN [Concomitant]
  3. CO-CODAMOL [Concomitant]
  4. DIPYRIDAMOLE [Concomitant]
  5. SIMVASTATIN [Concomitant]
  6. THIAMINE HCL [Concomitant]

REACTIONS (2)
  - GASTROINTESTINAL HAEMORRHAGE [None]
  - HAEMATEMESIS [None]
